FAERS Safety Report 4602773-1 (Version None)
Quarter: 2005Q1

REPORT INFORMATION
  Report Type: 
  Country: None (occurrence: None)
  Receive Date: 20050309
  Receipt Date: 20050225
  Transmission Date: 20050727
  Serious: Yes (Hospitalization)
  Sender: FDA-Public Use
  Company Number: CH-JNJFOC-20050300020

PATIENT
  Age: 47 Year
  Sex: Male

DRUGS (4)
  1. TOPAMAX [Suspect]
     Indication: EPILEPSY
     Route: 049
     Dates: start: 20041203, end: 20050121
  2. BACTRIM [Suspect]
     Route: 049
  3. BACTRIM [Suspect]
     Indication: URINARY TRACT INFECTION
     Route: 049
  4. PHENOBARBITAL [Suspect]
     Indication: EPILEPSY
     Route: 049

REACTIONS (5)
  - CROSS SENSITIVITY REACTION [None]
  - HEPATIC ENZYME INCREASED [None]
  - PRURITUS [None]
  - RASH [None]
  - RASH ERYTHEMATOUS [None]
